FAERS Safety Report 7760586-6 (Version None)
Quarter: 2011Q3

REPORT INFORMATION
  Report Type: 
  Country: None (occurrence: None)
  Receive Date: 20110919
  Receipt Date: 20110913
  Transmission Date: 20111222
  Serious: Yes (Hospitalization)
  Sender: FDA-Public Use
  Company Number: US-ACTELION-A-US2011-46457

PATIENT

DRUGS (4)
  1. OXYGEN [Concomitant]
  2. TRACLEER [Suspect]
     Indication: PULMONARY ARTERIAL HYPERTENSION
     Dosage: UNK
     Route: 048
     Dates: start: 20101208, end: 20110901
  3. MYCOPHENOLATE MOFETIL (CELLCEPT) [Concomitant]
  4. PREDNISONE [Concomitant]

REACTIONS (3)
  - LOWER RESPIRATORY TRACT INFLAMMATION [None]
  - LUNG DISORDER [None]
  - LUNG TRANSPLANT [None]
